FAERS Safety Report 5002642-1 (Version None)
Quarter: 2006Q2

REPORT INFORMATION
  Report Type: 
  Country: None (occurrence: None)
  Receive Date: 20060510
  Receipt Date: 20060502
  Transmission Date: 20061013
  Serious: Yes (Life-Threatening)
  Sender: FDA-Public Use
  Company Number: 217890

PATIENT
  Age: 63 Year
  Sex: Male
  Weight: 79.5 kg

DRUGS (22)
  1. RITUXIMAB ( RITUXIMAB) CONC FOR SOLUTION FOR INFUSION [Suspect]
     Indication: CHRONIC LYMPHOCYTIC LEUKAEMIA
     Dosage: 500 MG/M2, PER PROTOCOL, INTRAVENOUS
     Route: 042
     Dates: start: 20041005
  2. FLUDARABINE [Suspect]
     Indication: CHRONIC LYMPHOCYTIC LEUKAEMIA
     Dosage: 25 MG/M2, PER PROTOCOL, INTRAVENOUS
     Route: 042
     Dates: start: 20041006
  3. CYCLOPHOSPHAMIDE [Suspect]
     Indication: CHRONIC LYMPHOCYTIC LEUKAEMIA
     Dosage: 250 MG/M2, PER PROTOCOL, INTRAVENOUS
     Route: 042
     Dates: start: 20041006
  4. CALCIUM DOBESILATE (CALCIUM DOBESILATE) [Concomitant]
  5. ALPRAZOLAM [Concomitant]
  6. ALLOPURINOL [Concomitant]
  7. PANTOPRAZOLE SODIUM [Concomitant]
  8. FOSINOPRIL (FOSINOPRIL SODIUM) [Concomitant]
  9. VINPOCETINE (VINPOCETINE) [Concomitant]
  10. METFORMIN [Concomitant]
  11. GLICLAZIDE (GLICLAZIDE) [Concomitant]
  12. PROTON PUMP INHIBITORS (PROTON PUMP INHIBITORS) [Concomitant]
  13. FLUCONAZOLE [Concomitant]
  14. CIPROFLOXACIN [Concomitant]
  15. TELVIRAN (ACYCLOVIR) [Concomitant]
  16. XANAX [Concomitant]
  17. AMARYL [Concomitant]
  18. DOXIUM (CALCIUM DOBESILATE) [Concomitant]
  19. MONOPRIL [Concomitant]
  20. MILURIT (ALLOPURINOL) [Concomitant]
  21. CAVINTON (VINPOCETINE) [Concomitant]
  22. METFORMIN [Concomitant]

REACTIONS (12)
  - ACTIVATED PARTIAL THROMBOPLASTIN TIME PROLONGED [None]
  - BLOOD CALCIUM INCREASED [None]
  - BLOOD GLUCOSE INCREASED [None]
  - BLOOD LACTATE DEHYDROGENASE INCREASED [None]
  - BLOOD SODIUM INCREASED [None]
  - BLOOD TRIGLYCERIDES INCREASED [None]
  - BLOOD URIC ACID INCREASED [None]
  - CATARACT [None]
  - COUGH [None]
  - GRANULOCYTOPENIA [None]
  - NOCTURIA [None]
  - THROMBIN TIME PROLONGED [None]
